FAERS Safety Report 6703619-8 (Version None)
Quarter: 2010Q2

REPORT INFORMATION
  Report Type: 
  Country: None (occurrence: None)
  Receive Date: 20100430
  Receipt Date: 20100428
  Transmission Date: 20101027
  Serious: Yes (Death)
  Sender: FDA-Public Use
  Company Number: PHHY2010NL27419

PATIENT

DRUGS (1)
  1. SANDOSTATIN LAR [Suspect]

REACTIONS (1)
  - POST PROCEDURAL COMPLICATION [None]
